FAERS Safety Report 4646923-X (Version None)
Quarter: 2005Q2

REPORT INFORMATION
  Report Type: 
  Country: None (occurrence: None)
  Receive Date: 20050331
  Receipt Date: 20050215
  Transmission Date: 20051028
  Serious: No
  Sender: FDA-Public Use
  Company Number: 05P-163-0290757-00

PATIENT
  Age: 48 Year
  Sex: Female
  Weight: 102 kg

DRUGS (7)
  1. HUMIRA [Suspect]
     Indication: RHEUMATOID ARTHRITIS
     Dosage: 40 MG, 1 IN 2 WK, SUBCUTANEOUS
     Route: 058
     Dates: start: 20050103
  2. HYDROXYCHLOROQUINE SULFATE [Concomitant]
  3. LISINOPRIL [Concomitant]
  4. AZATHIOPRINE [Concomitant]
  5. ZOCOR [Concomitant]
  6. HYDROCODONE BITARTRATE [Concomitant]
  7. ASPIRIN [Concomitant]

REACTIONS (5)
  - CHEST PAIN [None]
  - COUGH [None]
  - MYALGIA [None]
  - POLLAKIURIA [None]
  - PYREXIA [None]
